FAERS Safety Report 7772408-8 (Version None)
Quarter: 2011Q3

REPORT INFORMATION
  Report Type: 
  Country: None (occurrence: None)
  Receive Date: 20110922
  Receipt Date: 20101203
  Transmission Date: 20111222
  Serious: No
  Sender: FDA-Public Use
  Company Number: US-ASTRAZENECA-2010SE57660

PATIENT
  Sex: Female
  Weight: 90.7 kg

DRUGS (1)
  1. SEROQUEL XR [Suspect]
     Indication: STRESS
     Route: 048

REACTIONS (2)
  - DRUG DOSE OMISSION [None]
  - INSOMNIA [None]
